FAERS Safety Report 9993334 (Version 2)
Quarter: 2014Q1

REPORT INFORMATION
  Report Type: Spontaneous
  Country: JP (occurrence: JP)
  Receive Date: 20140310
  Receipt Date: 20140321
  Transmission Date: 20141002
  Serious: Yes (Death, Other)
  Sender: FDA-Public Use
  Company Number: PHHY2014JP028253

PATIENT
  Age: 83 Year
  Sex: Male

DRUGS (3)
  1. EXJADE [Suspect]
     Indication: SERUM FERRITIN INCREASED
     Dosage: 500 MG, DAILY
     Route: 048
     Dates: start: 20140225
  2. LANSOPRAZOLE [Concomitant]
     Dosage: 15 MG, UNK
     Route: 048
     Dates: start: 20140302
  3. CARCOPA [Concomitant]
     Dosage: 200 MG, UNK
     Route: 048
     Dates: start: 20140302

REACTIONS (3)
  - Pneumonia [Fatal]
  - Haemochromatosis [Fatal]
  - Hepatic failure [Not Recovered/Not Resolved]
